FAERS Safety Report 17621574 (Version 1)
Quarter: 2020Q2

REPORT INFORMATION
  Report Type: Spontaneous
  Country: US (occurrence: US)
  Receive Date: 20200402
  Receipt Date: 20200402
  Transmission Date: 20200713
  Serious: Yes (Death)
  Sender: FDA-Public Use
  Company Number: None

PATIENT
  Age: 32 Year
  Sex: Female
  Weight: 60.3 kg

DRUGS (14)
  1. ZEJULA [Concomitant]
     Active Substance: NIRAPARIB
     Dates: start: 20190917, end: 20190918
  2. KEYTRUDA 100/4ML VIAL IV [Concomitant]
     Dates: start: 20181008, end: 20181019
  3. CYCLOPHOSPHAMIDE 25 MG, ORAL [Concomitant]
     Dates: start: 20181008, end: 20190319
  4. VENOFER 200MG /10ML VIAL IV [Concomitant]
     Dates: start: 20181121, end: 20190211
  5. AFINITOR 2.5 MG, TABLET ORAL [Concomitant]
     Dates: start: 20181008, end: 20181011
  6. NEUPOGEN 300 MCG/ 0.5ML SYRINGE, SQ [Concomitant]
     Dates: start: 20181008, end: 20181010
  7. CHLOROQUINE PH 250 MG, DAILY [Concomitant]
     Dates: start: 20190215, end: 20190909
  8. CELECOXIB 400 MG, ORAL CAPSULE [Concomitant]
     Dates: start: 20181008, end: 20181011
  9. CHLOROQUINE PH, 250MG, ORAL [Concomitant]
     Dates: start: 20181008, end: 20190215
  10. PROCRIT 20,000 UNITS/ML VIAL, SQ AS DIRECTED [Concomitant]
     Dates: start: 20181008, end: 20181010
  11. VENOFER 200 MG/10ML VIAL IV AS DIRECTED [Concomitant]
     Dates: start: 20181008, end: 20181123
  12. CHLOROQUINE PH 250 MG, DAILY [Concomitant]
     Dates: start: 20190909, end: 20191009
  13. CHLOROQUINE. [Suspect]
     Active Substance: CHLOROQUINE
     Route: 048
     Dates: start: 20191008, end: 20200402
  14. CAPECITABINE 500MG, ORAL [Concomitant]
     Dates: start: 20181008, end: 20181011

REACTIONS (1)
  - Death [None]

NARRATIVE: CASE EVENT DATE: 20200402
